FAERS Safety Report 4797041-1 (Version None)
Quarter: 2005Q3

REPORT INFORMATION
  Report Type: 
  Country: None (occurrence: None)
  Receive Date: 20050916
  Receipt Date: 20050411
  Transmission Date: 20060218
  Serious: Yes (Hospitalization)
  Sender: FDA-Public Use
  Company Number: US-JNJFOC-20050202852

PATIENT
  Age: 9 Year
  Sex: Female

DRUGS (2)
  1. TOPAMAX [Suspect]
     Indication: MIGRAINE PROPHYLAXIS
     Dosage: ,   IN 1 DAY
  2. DEPAKOTE [Concomitant]

REACTIONS (8)
  - ANTICONVULSANT DRUG LEVEL INCREASED [None]
  - DYSKINESIA [None]
  - ENCEPHALOPATHY [None]
  - HALLUCINATION [None]
  - HEADACHE [None]
  - MENTAL STATUS CHANGES [None]
  - NAUSEA [None]
  - SPEECH DISORDER [None]
